FAERS Safety Report 14877051 (Version 1)
Quarter: 2018Q2

REPORT INFORMATION
  Report Type: Spontaneous
  Country: US (occurrence: US)
  Receive Date: 20180424
  Receipt Date: 20180424
  Transmission Date: 20180711
  Serious: Yes (Hospitalization)
  Sender: FDA-Public Use
  Company Number: None

PATIENT
  Age: 73 Year
  Sex: Male

DRUGS (11)
  1. FERROUS SULFATE 325MG [Concomitant]
     Active Substance: FERROUS SULFATE
  2. DILTIAZEM ER 240MG [Concomitant]
  3. ESOMEPRAZOLE 40MG DR [Concomitant]
  4. TAMSULOSIN 0.4MG [Concomitant]
     Active Substance: TAMSULOSIN
  5. BICALUTAMIDE 50MG [Concomitant]
  6. JANUVIA [Concomitant]
     Active Substance: SITAGLIPTIN PHOSPHATE
  7. IBUPROFEN 600MG [Concomitant]
     Active Substance: IBUPROFEN
  8. VALSARTAN 80MG [Concomitant]
     Active Substance: VALSARTAN
  9. LUPRON [Suspect]
     Active Substance: LEUPROLIDE ACETATE
     Indication: PROSTATE CANCER
     Dosage: ?          OTHER FREQUENCY:MONTHLY;?
     Route: 030
  10. CARVEDILOL 12.5MG [Concomitant]
     Active Substance: CARVEDILOL
  11. ELIQUIS [Concomitant]
     Active Substance: APIXABAN

REACTIONS (2)
  - Therapy cessation [None]
  - Hospitalisation [None]

NARRATIVE: CASE EVENT DATE: 20180409
